FAERS Safety Report 9055943 (Version 3)
Quarter: 2013Q3

REPORT INFORMATION
  Report Type: Spontaneous
  Country: US (occurrence: US)
  Receive Date: 20130206
  Receipt Date: 20130906
  Transmission Date: 20140515
  Serious: Yes (Death, Hospitalization, Other)
  Sender: FDA-Public Use
  Company Number: US-B.I. PHARMACEUTICALS,INC./RIDGEFIELD-2013-BI-03496BP

PATIENT
  Age: 73 Year
  Sex: Female
  Weight: 49.9 kg

DRUGS (20)
  1. PRADAXA [Suspect]
     Indication: ATRIAL FIBRILLATION
     Dosage: 150 MG
     Dates: start: 20110922, end: 20111213
  2. PRADAXA [Suspect]
     Indication: ANTICOAGULANT THERAPY
  3. BISOPROLOL FUMARATE [Concomitant]
     Dosage: 10 MG
     Dates: end: 2012
  4. EFFIENT [Concomitant]
     Dates: end: 2012
  5. ENALAPRIL MALEATE [Concomitant]
     Dosage: 20 MG
     Dates: end: 2012
  6. LEVOTHYROXINE [Concomitant]
     Dosage: 0.05 MG
     Dates: end: 2012
  7. LEXAPRO [Concomitant]
     Dates: end: 2012
  8. ZETIA [Concomitant]
     Dates: end: 2012
  9. POTASSIUM [Concomitant]
     Dosage: 40 MEQ
     Dates: end: 2012
  10. TRAMADOL HCL [Concomitant]
     Dates: end: 2012
  11. MULTAQ [Concomitant]
     Dates: end: 201109
  12. PLAVIX [Concomitant]
     Dates: end: 201111
  13. IMODIUM [Concomitant]
  14. TYLENOL [Concomitant]
  15. ASPIRIN [Concomitant]
     Dosage: 81 MG
  16. AMLODIPINE [Concomitant]
     Dosage: 5 MG
  17. CYPROHEPTADINE [Concomitant]
     Dosage: 12 MG
  18. ESCITALOPRAM [Concomitant]
     Dosage: 10 MG
  19. ACETAMIDE [Concomitant]
     Dosage: 10 MG
  20. FUROSEMIDE [Concomitant]
     Dosage: 80 MG

REACTIONS (6)
  - Septic shock [Fatal]
  - Staphylococcal sepsis [Fatal]
  - Gastrointestinal haemorrhage [Recovered/Resolved]
  - Gastric ulcer [Unknown]
  - Cerebrovascular accident [Unknown]
  - Blood urine present [Unknown]
